FAERS Safety Report 15931130 (Version 1)
Quarter: 2019Q1

REPORT INFORMATION
  Report Type: Spontaneous
  Country: US (occurrence: US)
  Receive Date: 20190207
  Receipt Date: 20190207
  Transmission Date: 20190417
  Serious: No
  Sender: FDA-Public Use
  Company Number: None

PATIENT
  Age: 56 Year
  Sex: Female

DRUGS (12)
  1. MIRTAZAPINE 30MG [Concomitant]
     Active Substance: MIRTAZAPINE
  2. BIKTARVY [Suspect]
     Active Substance: BICTEGRAVIR SODIUM\EMTRICITABINE\TENOFOVIR ALAFENAMIDE FUMARATE
     Indication: HIV INFECTION
     Route: 048
     Dates: start: 20181028, end: 20190207
  3. CLOBETASOL [Concomitant]
     Active Substance: CLOBETASOL
  4. SILENOR 6MG [Concomitant]
  5. GABAPENTIN 600MG [Concomitant]
     Active Substance: GABAPENTIN
  6. ATORVASTATIN 20MG [Concomitant]
     Active Substance: ATORVASTATIN
  7. AMLODIPINE [Concomitant]
     Active Substance: AMLODIPINE BESYLATE
  8. CLONIDINE 0.1MG [Concomitant]
     Active Substance: CLONIDINE
  9. VALACYCLOVIR 1GM [Concomitant]
     Active Substance: VALACYCLOVIR HYDROCHLORIDE
  10. VALSARTAN/HCTZ 80/12.5MG [Concomitant]
  11. QUETIAPINE 200MG [Concomitant]
     Active Substance: QUETIAPINE
  12. METFORMIN [Concomitant]
     Active Substance: METFORMIN HYDROCHLORIDE

REACTIONS (1)
  - Hyperhidrosis [None]

NARRATIVE: CASE EVENT DATE: 20190206
